FAERS Safety Report 10347189 (Version 2)
Quarter: 2014Q4

REPORT INFORMATION
  Report Type: Spontaneous
  Country: JP (occurrence: JP)
  Receive Date: 20140729
  Receipt Date: 20141002
  Transmission Date: 20150528
  Serious: Yes (Life-Threatening, Hospitalization)
  Sender: FDA-Public Use
  Company Number: JP-ASTELLAS-2014JP013773

PATIENT
  Age: 71 Year
  Sex: Male
  Weight: 35 kg

DRUGS (19)
  1. ONEALFA [Concomitant]
     Active Substance: ALFACALCIDOL
     Indication: OSTEOPOROSIS
     Dosage: 0.5 ?G, ONCE DAILY
     Route: 048
  2. OLMETEC [Concomitant]
     Active Substance: OLMESARTAN MEDOXOMIL
     Indication: HYPERTENSION
     Route: 048
  3. LASIX [Concomitant]
     Active Substance: FUROSEMIDE
     Indication: OEDEMA
     Route: 048
  4. CEFTRIAXONE /00672202/ [Suspect]
     Active Substance: CEFTRIAXONE
     Indication: PNEUMONIA ASPIRATION
     Route: 041
     Dates: start: 20140624, end: 20140703
  5. MAGLAX [Concomitant]
     Active Substance: MAGNESIUM OXIDE
     Indication: CONSTIPATION
     Route: 048
  6. PREDONINE [Concomitant]
     Active Substance: PREDNISOLONE\PREDNISOLONE ACETATE\PREDNISOLONE SODIUM SUCCINATE
     Indication: POLYMYOSITIS
     Route: 048
     Dates: end: 20140522
  7. PROGRAF [Suspect]
     Active Substance: TACROLIMUS\TACROLIMUS ANHYDROUS
     Indication: POLYMYOSITIS
     Route: 048
     Dates: start: 20130219, end: 20130805
  8. METHYCOBAL [Concomitant]
     Active Substance: METHYLCOBALAMIN
     Indication: PRODUCT USED FOR UNKNOWN INDICATION
     Route: 048
  9. BARACLUDE [Concomitant]
     Active Substance: ENTECAVIR
     Indication: HEPATITIS B
     Dosage: 0.5 MG, ONCE DAILY
     Route: 048
  10. AMPICILLIN AND SULBACTAM [Concomitant]
     Active Substance: AMPICILLIN SODIUM\SULBACTAM SODIUM
     Indication: CELLULITIS
     Route: 065
     Dates: start: 20140509, end: 20140518
  11. PROGRAF [Suspect]
     Active Substance: TACROLIMUS\TACROLIMUS ANHYDROUS
     Route: 048
     Dates: start: 20130806, end: 20131008
  12. SENNA [Concomitant]
     Active Substance: SENNA LEAF\SENNOSIDES\SENNOSIDES A AND B
     Indication: CONSTIPATION
     Dosage: 0.5 G, ONCE DAILY
     Route: 048
  13. AMLODIPINE                         /00972402/ [Concomitant]
     Active Substance: AMLODIPINE BESYLATE
     Indication: HYPERTENSION
     Route: 048
  14. SAMTIREL [Concomitant]
     Active Substance: ATOVAQUONE
     Indication: PROPHYLAXIS
     Route: 048
  15. FUNGUARD [Suspect]
     Active Substance: MICAFUNGIN SODIUM
     Indication: PNEUMONIA ASPIRATION
     Route: 041
     Dates: start: 20140624, end: 20140701
  16. PROGRAF [Suspect]
     Active Substance: TACROLIMUS\TACROLIMUS ANHYDROUS
     Dosage: 2 MG, 3 MG, TWICE DAILY
     Route: 048
     Dates: start: 20131009, end: 20140607
  17. PREDONINE [Concomitant]
     Active Substance: PREDNISOLONE\PREDNISOLONE ACETATE\PREDNISOLONE SODIUM SUCCINATE
     Route: 048
     Dates: start: 20140523
  18. PROGRAF [Suspect]
     Active Substance: TACROLIMUS\TACROLIMUS ANHYDROUS
     Route: 048
     Dates: start: 20140608, end: 20140701
  19. PROTECADIN [Concomitant]
     Active Substance: LAFUTIDINE
     Indication: PROPHYLAXIS AGAINST GASTROINTESTINAL ULCER
     Route: 048

REACTIONS (18)
  - Cellulitis [None]
  - Somnolence [None]
  - Dementia [None]
  - Thrombotic thrombocytopenic purpura [Recovered/Resolved]
  - Intentional product misuse [Unknown]
  - Myositis [None]
  - Haemolytic anaemia [None]
  - Disease complication [None]
  - Blood pressure decreased [None]
  - Renal failure [None]
  - Disease recurrence [None]
  - Malnutrition [None]
  - Pneumonia aspiration [None]
  - Cerebral ischaemia [None]
  - Oedema [None]
  - Disease progression [None]
  - Haemoglobin decreased [None]
  - Hypoalbuminaemia [None]

NARRATIVE: CASE EVENT DATE: 20130219
